FAERS Safety Report 10005902 (Version 8)
Quarter: 2016Q2

REPORT INFORMATION
  Report Type: Spontaneous
  Country: JP (occurrence: JP)
  Receive Date: 20140313
  Receipt Date: 20160407
  Transmission Date: 20160815
  Serious: Yes (Hospitalization)
  Sender: FDA-Public Use
  Company Number: JP-JNJFOC-20140306119

PATIENT
  Age: 27 Year
  Sex: Female
  Weight: 54 kg

DRUGS (4)
  1. REMICADE [Suspect]
     Active Substance: INFLIXIMAB
     Indication: PUSTULAR PSORIASIS
     Dosage: 6TH DOSE
     Route: 042
     Dates: start: 20140206, end: 20140206
  2. REMICADE [Suspect]
     Active Substance: INFLIXIMAB
     Indication: PUSTULAR PSORIASIS
     Route: 042
     Dates: start: 20140222, end: 20140222
  3. REMICADE [Suspect]
     Active Substance: INFLIXIMAB
     Indication: PUSTULAR PSORIASIS
     Dosage: 5TH DOSE
     Route: 042
     Dates: start: 20130919, end: 20130919
  4. REMICADE [Suspect]
     Active Substance: INFLIXIMAB
     Indication: PUSTULAR PSORIASIS
     Dosage: FOR 4 DAYS
     Route: 042
     Dates: start: 20130404

REACTIONS (7)
  - Premature labour [Recovered/Resolved]
  - Genital haemorrhage [Unknown]
  - Pustular psoriasis [Recovering/Resolving]
  - Drug ineffective [Unknown]
  - Abdominal pain lower [Unknown]
  - Abortion [Unknown]
  - Exposure during pregnancy [Recovered/Resolved]

NARRATIVE: CASE EVENT DATE: 20131118
